FAERS Safety Report 9775028 (Version 1)
Quarter: 2013Q4

REPORT INFORMATION
  Report Type: Spontaneous
  Country: US (occurrence: US)
  Receive Date: 20131220
  Receipt Date: 20131220
  Transmission Date: 20140711
  Serious: No
  Sender: FDA-Public Use
  Company Number: US-GLAXOSMITHKLINE-A1040433A

PATIENT
  Age: 67 Year
  Sex: Male

DRUGS (6)
  1. AVODART [Suspect]
     Indication: PROSTATOMEGALY
     Dosage: .5MG PER DAY
     Route: 048
     Dates: start: 2011
  2. RAMIPRIL [Concomitant]
  3. AMLODIPINE [Concomitant]
  4. BABY ASPIRIN [Concomitant]
  5. CRESTOR [Concomitant]
  6. NIASPAN [Concomitant]

REACTIONS (7)
  - Neoplasm prostate [Not Recovered/Not Resolved]
  - Blood thyroid stimulating hormone increased [Unknown]
  - Haemoglobin increased [Unknown]
  - Blood creatinine decreased [Unknown]
  - Blood testosterone decreased [Unknown]
  - Prostatitis [Unknown]
  - Genital discomfort [Unknown]
